FAERS Safety Report 12639056 (Version 1)
Quarter: 2016Q3

REPORT INFORMATION
  Report Type: Spontaneous
  Country: CA (occurrence: CA)
  Receive Date: 20160809
  Receipt Date: 20160809
  Transmission Date: 20161109
  Serious: No
  Sender: FDA-Public Use
  Company Number: CA-TEVA-670351ACC

PATIENT
  Sex: Female

DRUGS (1)
  1. PLAN B ONE-STEP [Suspect]
     Active Substance: LEVONORGESTREL
     Indication: POST COITAL CONTRACEPTION
     Dosage: BOTH PILLS AT THE SAME TIME

REACTIONS (3)
  - Vaginal haemorrhage [Not Recovered/Not Resolved]
  - Product solubility abnormal [Unknown]
  - Nausea [Not Recovered/Not Resolved]
